FAERS Safety Report 24553477 (Version 1)
Quarter: 2024Q4

REPORT INFORMATION
  Report Type: Report from Study
  Country: US (occurrence: US)
  Receive Date: 20241028
  Receipt Date: 20241028
  Transmission Date: 20250115
  Serious: No
  Sender: ROCHE
  Company Number: US-ROCHE-3494413

PATIENT
  Sex: Female
  Weight: 65.8 kg

DRUGS (1)
  1. NUTROPIN AQ [Suspect]
     Active Substance: SOMATROPIN
     Indication: Postoperative hypopituitarism
     Route: 058

REACTIONS (4)
  - Headache [Unknown]
  - Asthenia [Unknown]
  - Weight increased [Unknown]
  - Middle insomnia [Unknown]
